FAERS Safety Report 8387296-9 (Version None)
Quarter: 2012Q2

REPORT INFORMATION
  Report Type: 
  Country: None (occurrence: None)
  Receive Date: 20120525
  Receipt Date: 20120511
  Transmission Date: 20120825
  Serious: Yes (Other)
  Sender: FDA-Public Use
  Company Number: CA-ROCHE-1068862

PATIENT
  Sex: Female
  Weight: 84.898 kg

DRUGS (15)
  1. METHYLPREDNISOLONE [Concomitant]
     Indication: PREMEDICATION
     Route: 042
     Dates: start: 20111212, end: 20111212
  2. SPIRONOLACTONE [Concomitant]
  3. PREDNISONE TAB [Concomitant]
  4. ACETAMINOPHEN [Concomitant]
     Indication: PREMEDICATION
     Route: 048
     Dates: start: 20111212, end: 20111212
  5. MABTHERA [Suspect]
     Indication: RHEUMATOID ARTHRITIS
     Route: 042
     Dates: start: 20100930
  6. METHOTREXATE [Concomitant]
  7. PREMARIN [Concomitant]
     Dosage: DRUG REPORTED AS PREMIRON
  8. HYDROCHLOROTHIAZIDE [Concomitant]
  9. DIPHENHYDRAMINE HCL [Concomitant]
     Indication: PREMEDICATION
     Route: 048
     Dates: start: 20111212, end: 20111212
  10. ATACAND [Concomitant]
  11. NITROGLYCERIN SPRAY [Concomitant]
     Indication: ARTERIOSPASM CORONARY
  12. EFUDEX [Concomitant]
     Indication: SKIN CANCER
     Route: 061
  13. DICLOFENAC [Concomitant]
     Indication: INFLAMMATION
     Route: 061
  14. TIAZAC [Concomitant]
  15. FOLIC ACID [Concomitant]

REACTIONS (2)
  - BASAL CELL CARCINOMA [None]
  - DRUG EFFECT DECREASED [None]
